FAERS Safety Report 10915559 (Version 1)
Quarter: 2015Q1

REPORT INFORMATION
  Report Type: Spontaneous
  Country: US (occurrence: US)
  Receive Date: 20150316
  Receipt Date: 20150316
  Transmission Date: 20150721
  Serious: No
  Sender: FDA-Public Use
  Company Number: US-PFIZER INC-2015090601

PATIENT
  Age: 36 Year
  Sex: Male

DRUGS (2)
  1. VIAGRA [Suspect]
     Active Substance: SILDENAFIL CITRATE
     Dosage: 30 MG (TWO TABLETS)
     Route: 048
     Dates: start: 2015
  2. VIAGRA [Suspect]
     Active Substance: SILDENAFIL CITRATE
     Indication: ERECTILE DYSFUNCTION
     Dosage: 15 MG, UNK
     Route: 048
     Dates: start: 2015

REACTIONS (5)
  - Intentional product misuse [Unknown]
  - Semen analysis abnormal [Unknown]
  - Penis disorder [Unknown]
  - Semen discolouration [Unknown]
  - Semen volume increased [Unknown]

NARRATIVE: CASE EVENT DATE: 2015
